FAERS Safety Report 25585329 (Version 1)
Quarter: 2025Q3

REPORT INFORMATION
  Report Type: Spontaneous
  Country: US (occurrence: US)
  Receive Date: 20250721
  Receipt Date: 20250721
  Transmission Date: 20251021
  Serious: Yes (Life-Threatening, Hospitalization)
  Sender: PFIZER
  Company Number: US-MLMSERVICE-20250710-PI572930-00145-1

PATIENT
  Age: 18 Year
  Sex: Female

DRUGS (6)
  1. FENTANYL CITRATE [Suspect]
     Active Substance: FENTANYL CITRATE
     Indication: Sedative therapy
  2. PROPOFOL [Concomitant]
     Active Substance: PROPOFOL
     Indication: Sedative therapy
  3. ETOMIDATE [Concomitant]
     Active Substance: ETOMIDATE
     Indication: Sedative therapy
     Route: 042
  4. SUCCINYLCHOLINE CHLORIDE [Concomitant]
     Active Substance: SUCCINYLCHOLINE CHLORIDE
     Indication: Sedative therapy
     Route: 042
  5. KETAMINE [Concomitant]
     Active Substance: KETAMINE
     Indication: Sedative therapy
  6. OXYGEN [Concomitant]
     Active Substance: OXYGEN
     Indication: Dyspnoea

REACTIONS (1)
  - Chest wall rigidity [Recovering/Resolving]
